FAERS Safety Report 15220042 (Version 4)
Quarter: 2019Q1

REPORT INFORMATION
  Report Type: Spontaneous
  Country: US (occurrence: US)
  Receive Date: 20180731
  Receipt Date: 20190315
  Transmission Date: 20190417
  Serious: No
  Sender: FDA-Public Use
  Company Number: US-PFIZER INC-2018303915

PATIENT
  Age: 7 Year
  Sex: Male
  Weight: 19.5 kg

DRUGS (4)
  1. GENOTROPIN [Suspect]
     Active Substance: SOMATROPIN
     Indication: GROWTH HORMONE DEFICIENCY
     Dosage: 0.9 MG, DAILY
     Dates: start: 20161112
  2. GENOTROPIN [Suspect]
     Active Substance: SOMATROPIN
     Dosage: 0.3 MG, SINGLE [0.3 MG DOSE TONIGHT]
  3. GENOTROPIN [Suspect]
     Active Substance: SOMATROPIN
     Dosage: 1 MG, DAILY
     Dates: start: 20161112
  4. SYNTHROID [Concomitant]
     Active Substance: LEVOTHYROXINE SODIUM
     Indication: THYROID DISORDER
     Dosage: UNK

REACTIONS (6)
  - Disturbance in attention [Unknown]
  - Pain in extremity [Unknown]
  - Abnormal behaviour [Unknown]
  - Incorrect dose administered [Unknown]
  - Aggression [Unknown]
  - Device issue [Unknown]
